FAERS Safety Report 6677009-0 (Version None)
Quarter: 2010Q2

REPORT INFORMATION
  Report Type: 
  Country: None (occurrence: None)
  Receive Date: 20100412
  Receipt Date: 20100329
  Transmission Date: 20101027
  Serious: Yes (Hospitalization)
  Sender: FDA-Public Use
  Company Number: US-ELI_LILLY_AND_COMPANY-US201004001104

PATIENT
  Sex: Female

DRUGS (2)
  1. FORTEO [Suspect]
     Dosage: 20 UG, DAILY (1/D)
     Dates: start: 20070101, end: 20090101
  2. FORTEO [Suspect]
     Dates: start: 20100301

REACTIONS (7)
  - INTENTIONAL DRUG MISUSE [None]
  - MALAISE [None]
  - MEDICATION ERROR [None]
  - MOBILITY DECREASED [None]
  - PANCREATIC DISORDER [None]
  - RENAL FAILURE [None]
  - RENAL INJURY [None]
